FAERS Safety Report 13495095 (Version 2)
Quarter: 2017Q3

REPORT INFORMATION
  Report Type: Spontaneous
  Country: CO (occurrence: CO)
  Receive Date: 20170428
  Receipt Date: 20170701
  Transmission Date: 20171127
  Serious: Yes (Death, Other)
  Sender: FDA-Public Use
  Company Number: CO-AMGEN-COLSP2017065201

PATIENT
  Age: 54 Year
  Sex: Female

DRUGS (1)
  1. KYPROLIS [Suspect]
     Active Substance: CARFILZOMIB
     Indication: PLASMA CELL MYELOMA
     Dosage: UNK
     Route: 065

REACTIONS (4)
  - Thrombocytopenia [Unknown]
  - Drug effect incomplete [Unknown]
  - Cardiomyopathy [Unknown]
  - Death [Fatal]
